FAERS Safety Report 8497021 (Version 2)
Quarter: 2013Q2

REPORT INFORMATION
  Report Type: Spontaneous
  Country: US (occurrence: None)
  Receive Date: 20120322
  Receipt Date: 20120621
  Transmission Date: 20140414
  Serious: Yes (Hospitalization)
  Sender: FDA-Public Use
  Company Number: UTC-015635

PATIENT
  Sex: Female
  Weight: 81.8 kg

DRUGS (3)
  1. TYVASO [Suspect]
     Indication: COR PULMONALE CHRONIC
     Dosage: 18-54 MICROGRAMS (4 IN 1 D) , INHALATION
     Route: 055
     Dates: start: 20091203
  2. COUMADIN [Concomitant]
  3. TRACLEER [Concomitant]

REACTIONS (1)
  - SICKLE CELL ANAEMIA WITH CRISIS [None]
